FAERS Safety Report 22143005 (Version 1)
Quarter: 2023Q1

REPORT INFORMATION
  Report Type: Spontaneous
  Country: US (occurrence: None)
  Receive Date: 20230327
  Receipt Date: 20230327
  Transmission Date: 20230417
  Serious: No
  Sender: FDA-Public Use
  Company Number: 2023A052829

PATIENT
  Age: 807 Month

DRUGS (1)
  1. BUDESONIDE\FORMOTEROL\GLYCOPYRRONIUM [Suspect]
     Active Substance: BUDESONIDE\FORMOTEROL\GLYCOPYRRONIUM
     Route: 055
     Dates: start: 20230213, end: 202302

REACTIONS (6)
  - Nasal discharge discolouration [Unknown]
  - Oropharyngeal pain [Unknown]
  - Tremor [Unknown]
  - Nervousness [Unknown]
  - Nervousness [Unknown]
  - Cough [Unknown]

NARRATIVE: CASE EVENT DATE: 20230201
